FAERS Safety Report 6654041-4 (Version None)
Quarter: 2010Q1

REPORT INFORMATION
  Report Type: 
  Country: None (occurrence: None)
  Receive Date: 20100326
  Receipt Date: 20100315
  Transmission Date: 20100710
  Serious: Yes (Other)
  Sender: FDA-Public Use
  Company Number: US-ELI_LILLY_AND_COMPANY-US201003005465

PATIENT
  Sex: Female

DRUGS (6)
  1. FORTEO [Suspect]
     Indication: OSTEOPOROSIS
     Dosage: 20 UG, DAILY (1/D)
     Dates: end: 20100111
  2. FORTEO [Suspect]
     Dosage: 20 UG, DAILY (1/D)
     Dates: start: 20100209
  3. METHIMAZOLE [Concomitant]
     Dosage: 5 MG, 1/2 TABLET EVERY OTHER DAY
  4. VITAMINS NOS [Concomitant]
  5. CALCIUM [Concomitant]
  6. FISH OIL [Concomitant]

REACTIONS (3)
  - BLOOD CALCIUM INCREASED [None]
  - BREAST CALCIFICATIONS [None]
  - BREAST CANCER [None]
